FAERS Safety Report 8386720-5 (Version None)
Quarter: 2012Q2

REPORT INFORMATION
  Report Type: 
  Country: None (occurrence: None)
  Receive Date: 20120525
  Receipt Date: 20120518
  Transmission Date: 20120825
  Serious: Yes (Hospitalization)
  Sender: FDA-Public Use
  Company Number: US-GENZYME-MOZO-1000699

PATIENT
  Age: 65 Year
  Sex: Male

DRUGS (3)
  1. GRANULOCYTE COLONY STIMULATING FACTOR [Suspect]
     Indication: MYELODYSPLASTIC SYNDROME
     Dosage: 10 MCG/KG, QD; DAYS 1-5
     Route: 058
     Dates: start: 20120505
  2. VIDAZA [Suspect]
     Indication: MYELODYSPLASTIC SYNDROME
     Dosage: 75 MG/M2, QD; DAYS 1-5
     Route: 058
     Dates: start: 20120430
  3. MOZOBIL [Suspect]
     Indication: MYELODYSPLASTIC SYNDROME
     Dosage: UNK; DAYS 1-5
     Route: 065
     Dates: start: 20120505

REACTIONS (1)
  - PANCYTOPENIA [None]
